FAERS Safety Report 8206812-0 (Version None)
Quarter: 2012Q1

REPORT INFORMATION
  Report Type: 
  Country: None (occurrence: None)
  Receive Date: 20120308
  Receipt Date: 20120126
  Transmission Date: 20120608
  Serious: Yes (Other)
  Sender: FDA-Public Use
  Company Number: 2011029936

PATIENT
  Age: 59 Year
  Sex: Female
  Weight: 136.5327 kg

DRUGS (26)
  1. HIZENTRA [Suspect]
  2. HIZENTRA [Suspect]
  3. ZETIA [Concomitant]
  4. HIZENTRA [Suspect]
  5. HIZENTRA [Suspect]
  6. SINGULAIR [Concomitant]
  7. KLOR-CON [Concomitant]
  8. OMEPRAZOLE (OMEPRZOLE) [Concomitant]
  9. HIZENTRA [Suspect]
     Indication: IMMUNODEFICIENCY COMMON VARIABLE
     Dosage: 1X/WEEK, 1 GM 5 ML VIAL; 85 ML WEEKLY IN 4-6 SITES OVER 2-2.5 HOURS SUBCUTANEOUS), (4 GM 20 ML VIAL
     Route: 058
     Dates: start: 20110928
  10. HIZENTRA [Suspect]
     Indication: IMMUNODEFICIENCY COMMON VARIABLE
     Dosage: 1X/WEEK, 1 GM 5 ML VIAL; 85 ML WEEKLY IN 4-6 SITES OVER 2-2.5 HOURS SUBCUTANEOUS), (4 GM 20 ML VIAL
     Route: 058
     Dates: start: 20111111, end: 20111111
  11. HIZENTRA [Suspect]
     Indication: IMMUNODEFICIENCY COMMON VARIABLE
     Dosage: 1X/WEEK, 1 GM 5 ML VIAL; 85 ML WEEKLY IN 4-6 SITES OVER 2-2.5 HOURS SUBCUTANEOUS), (4 GM 20 ML VIAL
     Route: 058
     Dates: start: 20110928
  12. HIZENTRA [Suspect]
     Indication: IMMUNODEFICIENCY COMMON VARIABLE
     Dosage: 1X/WEEK, 1 GM 5 ML VIAL; 85 ML WEEKLY IN 4-6 SITES OVER 2-2.5 HOURS SUBCUTANEOUS), (4 GM 20 ML VIAL
     Route: 058
     Dates: start: 20110928
  13. HIZENTRA [Suspect]
     Indication: IMMUNODEFICIENCY COMMON VARIABLE
     Dosage: 1X/WEEK, 1 GM 5 ML VIAL; 85 ML WEEKLY IN 4-6 SITES OVER 2-2.5 HOURS SUBCUTANEOUS), (4 GM 20 ML VIAL
     Route: 058
     Dates: start: 20110928
  14. HIZENTRA [Suspect]
     Indication: IMMUNODEFICIENCY COMMON VARIABLE
     Dosage: 1X/WEEK, 1 GM 5 ML VIAL; 85 ML WEEKLY IN 4-6 SITES OVER 2-2.5 HOURS SUBCUTANEOUS), (4 GM 20 ML VIAL
     Route: 058
     Dates: start: 20110928
  15. HIZENTRA [Suspect]
     Indication: IMMUNODEFICIENCY COMMON VARIABLE
     Dosage: 1X/WEEK, 1 GM 5 ML VIAL; 85 ML WEEKLY IN 4-6 SITES OVER 2-2.5 HOURS SUBCUTANEOUS), (4 GM 20 ML VIAL
     Route: 058
     Dates: start: 20110928
  16. HIZENTRA [Suspect]
     Indication: IMMUNODEFICIENCY COMMON VARIABLE
     Dosage: 1X/WEEK, 1 GM 5 ML VIAL; 85 ML WEEKLY IN 4-6 SITES OVER 2-2.5 HOURS SUBCUTANEOUS), (4 GM 20 ML VIAL
     Route: 058
     Dates: start: 20111111, end: 20111111
  17. HIZENTRA [Suspect]
     Indication: IMMUNODEFICIENCY COMMON VARIABLE
     Dosage: 1X/WEEK, 1 GM 5 ML VIAL; 85 ML WEEKLY IN 4-6 SITES OVER 2-2.5 HOURS SUBCUTANEOUS), (4 GM 20 ML VIAL
     Route: 058
     Dates: start: 20110928
  18. HIZENTRA [Suspect]
  19. HIZENTRA [Suspect]
  20. LOSARTAN POTASSIUM [Concomitant]
  21. NEURONTIN [Concomitant]
  22. LASIX [Concomitant]
  23. HIZENTRA [Suspect]
  24. ALDACTONE [Concomitant]
  25. EFFEXOR (VENLAF2XINE) [Concomitant]
  26. DICLOFENAC SODIUM [Concomitant]

REACTIONS (7)
  - ARTHRALGIA [None]
  - INJURY [None]
  - URINARY TRACT INFECTION [None]
  - PAIN [None]
  - INFUSION SITE PRURITUS [None]
  - MUSCULOSKELETAL STIFFNESS [None]
  - THROMBOSIS [None]
